FAERS Safety Report 6476734-4 (Version None)
Quarter: 2009Q4

REPORT INFORMATION
  Report Type: 
  Country: None (occurrence: None)
  Receive Date: 20091207
  Receipt Date: 20091125
  Transmission Date: 20100525
  Serious: Yes (Hospitalization, Other)
  Sender: FDA-Public Use
  Company Number: PHHY2009IE51703

PATIENT

DRUGS (1)
  1. SYNTOCINON [Suspect]

REACTIONS (8)
  - ABDOMINAL PAIN [None]
  - COAGULOPATHY [None]
  - INFLUENZA LIKE ILLNESS [None]
  - LOCHIAL INFECTION [None]
  - POSTPARTUM HAEMORRHAGE [None]
  - PREMATURE BABY [None]
  - PYREXIA [None]
  - VAGINAL DISCHARGE [None]
